FAERS Safety Report 4467243-2 (Version None)
Quarter: 2004Q4

REPORT INFORMATION
  Report Type: 
  Country: None (occurrence: None)
  Receive Date: 20041006
  Receipt Date: 20040925
  Transmission Date: 20050328
  Serious: Yes (Hospitalization)
  Sender: FDA-Public Use
  Company Number: CN-MERCK-0409CHN00032

PATIENT
  Age: 74 Year
  Sex: Male
  Weight: 80 kg

DRUGS (4)
  1. ANTIMICROBIAL (UNSPECIFIED) [Concomitant]
     Indication: UPPER RESPIRATORY TRACT INFECTION
     Route: 065
  2. PRIMAXIN [Suspect]
     Indication: UPPER RESPIRATORY TRACT INFECTION
     Route: 042
     Dates: start: 20040915, end: 20040922
  3. PRIMAXIN [Suspect]
     Route: 042
     Dates: start: 20040923, end: 20040924
  4. THEOPHYLLINE [Concomitant]
     Route: 048

REACTIONS (5)
  - AZOTAEMIA [None]
  - CHROMATURIA [None]
  - CONDITION AGGRAVATED [None]
  - HAEMODIALYSIS [None]
  - RENAL FAILURE CHRONIC [None]
